FAERS Safety Report 20886628 (Version 2)
Quarter: 2022Q2

REPORT INFORMATION
  Report Type: Report from Study
  Country: US (occurrence: US)
  Receive Date: 20220527
  Receipt Date: 20220602
  Transmission Date: 20220721
  Serious: No
  Sender: FDA-Public Use
  Company Number: US-NOVARTISTESTPH-NVSC2022US123034

PATIENT
  Sex: Female

DRUGS (1)
  1. COSENTYX [Suspect]
     Active Substance: SECUKINUMAB
     Indication: Psoriasis
     Dosage: 300 MG, (ONE SINGLE DOSE)
     Route: 058

REACTIONS (4)
  - Scar [Unknown]
  - Skin plaque [Unknown]
  - Injection site pain [Unknown]
  - Injection site swelling [Unknown]
